FAERS Safety Report 12651338 (Version 2)
Quarter: 2017Q2

REPORT INFORMATION
  Report Type: Spontaneous
  Country: IT (occurrence: IT)
  Receive Date: 20160815
  Receipt Date: 20170508
  Transmission Date: 20170830
  Serious: Yes (Other)
  Sender: FDA-Public Use
  Company Number: IT-TEVA-685053ISR

PATIENT
  Age: 54 Year
  Sex: Female
  Weight: 78 kg

DRUGS (5)
  1. LEDERFOLIN [Concomitant]
     Active Substance: LEUCOVORIN CALCIUM
     Indication: ADENOCARCINOMA OF COLON
     Dosage: 280MG
     Dates: start: 20150721, end: 20160505
  2. FLUOROURACIL. [Concomitant]
     Active Substance: FLUOROURACIL
     Indication: ADENOCARCINOMA OF COLON
     Dosage: 560MG AND 3400MG
     Route: 040
     Dates: start: 20150721, end: 20160505
  3. IRINOTECAN CONCENTRATE FOR SOLUTION FOR INFUSION [Suspect]
     Active Substance: IRINOTECAN
     Indication: ADENOCARCINOMA OF COLON
     Dosage: 250 MILLIGRAM DAILY;
     Route: 042
     Dates: start: 20150721, end: 20160505
  4. ERBITUX 340 MG [Concomitant]
     Indication: ADENOCARCINOMA OF COLON
     Dosage: 340MG
     Route: 042
     Dates: start: 20150721, end: 20160505
  5. EUTIROX [Concomitant]
     Active Substance: LEVOTHYROXINE SODIUM
     Dosage: 75MG
     Route: 048

REACTIONS (1)
  - Trismus [Recovering/Resolving]

NARRATIVE: CASE EVENT DATE: 20150903
